FAERS Safety Report 15893899 (Version 1)
Quarter: 2019Q1

REPORT INFORMATION
  Report Type: Spontaneous
  Country: US (occurrence: US)
  Receive Date: 20190109
  Receipt Date: 20190109
  Transmission Date: 20190417
  Serious: No
  Sender: FDA-Public Use
  Company Number: None

PATIENT
  Age: 61 Year
  Sex: Male
  Weight: 81.65 kg

DRUGS (1)
  1. ENBREL [Suspect]
     Active Substance: ETANERCEPT
     Indication: RHEUMATOID ARTHRITIS
     Dosage: INJECT 50 MG SUBCUTANEOUSLY ONCE WEEKLY AS DIRECTED
     Route: 058
     Dates: start: 201611

REACTIONS (4)
  - Dyspnoea [None]
  - Productive cough [None]
  - Cough [None]
  - Pulmonary congestion [None]
